FAERS Safety Report 24613533 (Version 2)
Quarter: 2025Q4

REPORT INFORMATION
  Report Type: Spontaneous
  Country: US (occurrence: US)
  Receive Date: 20241113
  Receipt Date: 20251016
  Transmission Date: 20260118
  Serious: No
  Sender: ORPHALAN
  Company Number: US-ORPHALAN-US-ORP-24-00066

PATIENT
  Sex: Female

DRUGS (4)
  1. CUVRIOR [Suspect]
     Active Substance: TRIENTINE TETRAHYDROCHLORIDE
     Indication: Hepato-lenticular degeneration
     Dosage: 300 MILLIGRAM, BID
     Route: 048
     Dates: start: 20240119, end: 20240419
  2. CUVRIOR [Suspect]
     Active Substance: TRIENTINE TETRAHYDROCHLORIDE
     Dosage: 300 MILLIGRAM, QD
     Route: 048
     Dates: start: 20240419, end: 20250228
  3. CUVRIOR [Suspect]
     Active Substance: TRIENTINE TETRAHYDROCHLORIDE
     Dosage: 300 MILLIGRAM, BID
     Route: 048
     Dates: start: 20250228
  4. GALZIN [Concomitant]
     Active Substance: ZINC ACETATE
     Indication: Product used for unknown indication
     Dosage: UNK, UNK
     Route: 065

REACTIONS (1)
  - Tremor [Not Recovered/Not Resolved]
